FAERS Safety Report 10035557 (Version 1)
Quarter: 2014Q1

REPORT INFORMATION
  Report Type: Spontaneous
  Country: FR (occurrence: None)
  Receive Date: 20140321
  Receipt Date: 20140321
  Transmission Date: 20141002
  Serious: Yes (Other)
  Sender: FDA-Public Use
  Company Number: 7275142

PATIENT
  Age: 62 Year
  Sex: Female

DRUGS (9)
  1. LEVOTHYROX [Suspect]
     Indication: PRODUCT USED FOR UNKNOWN INDICATION
     Dosage: 100 MCG, ORAL
     Route: 048
  2. SPECIAFOLDINE [Suspect]
     Indication: PRODUCT USED FOR UNKNOWN INDICATION
     Dosage: 3 DF (PER WEEK), ORAL
     Route: 048
  3. ALTIZIDE [Suspect]
     Indication: PRODUCT USED FOR UNKNOWN INDICATION
     Dosage: 15 MG, ORAL
     Route: 048
  4. SPIRONOLACTONE [Suspect]
     Indication: PRODUCT USED FOR UNKNOWN INDICATION
     Dosage: 25 MG, ORAL
     Route: 048
  5. CORTANCYL [Suspect]
     Indication: PRODUCT USED FOR UNKNOWN INDICATION
     Dosage: 5 MG, ORAL
     Route: 048
  6. NOVATREX [Suspect]
     Indication: PRODUCT USED FOR UNKNOWN INDICATION
     Dosage: 12.5 MG (PER WEEK) , ORAL
     Route: 048
  7. METHYLPREDNISOLONE [Suspect]
     Indication: PRODUCT USED FOR UNKNOWN INDICATION
     Dosage: 100 MG (ON D1 AN ON D15 EVERY 6 MONTHS), INTRAVENOUS (NOT OTHERWISE SPECIFIED)?
     Route: 042
     Dates: start: 20140123, end: 20140123
  8. MABTHERA [Suspect]
     Indication: PRODUCT USED FOR UNKNOWN INDICATION
     Dosage: (ON D1 AND D15 EVERY 6 MONTHS), INTRAVENOUS (NOT OTHERWISE SPECIFIED)?
     Dates: start: 20140123, end: 20140123
  9. EFFERALGAN [Concomitant]

REACTIONS (2)
  - Transient ischaemic attack [None]
  - Conjunctival haemorrhage [None]
